FAERS Safety Report 9861040 (Version 1)
Quarter: 2014Q1

REPORT INFORMATION
  Report Type: Spontaneous
  Country: CH (occurrence: CH)
  Receive Date: 20140202
  Receipt Date: 20140202
  Transmission Date: 20141002
  Serious: No
  Sender: FDA-Public Use
  Company Number: CH-ALLERGAN-1303103US

PATIENT
  Sex: Female

DRUGS (3)
  1. VISTABEL [Suspect]
     Indication: SKIN WRINKLING
     Dosage: 28 UNITS, SINGLE
     Route: 030
  2. VISTABEL [Suspect]
     Indication: SKIN WRINKLING
  3. VISTABEL [Suspect]
     Indication: SKIN WRINKLING

REACTIONS (3)
  - Wrong technique in drug usage process [Unknown]
  - Drug ineffective [Unknown]
  - Therapeutic response decreased [Unknown]
